FAERS Safety Report 10233500 (Version 1)
Quarter: 2014Q2

REPORT INFORMATION
  Report Type: Spontaneous
  Country: US (occurrence: None)
  Receive Date: 20140611
  Receipt Date: 20140611
  Transmission Date: 20141212
  Serious: Yes (Hospitalization)
  Sender: FDA-Public Use
  Company Number: None

PATIENT
  Age: 66 Year
  Sex: Male
  Weight: 94.1 kg

DRUGS (1)
  1. HYDROXYZINE [Suspect]
     Indication: ANXIETY
     Route: 048
     Dates: start: 20140518, end: 20140520

REACTIONS (5)
  - Pharyngeal oedema [None]
  - Dizziness [None]
  - Vision blurred [None]
  - Dyspnoea [None]
  - Anaphylactic reaction [None]
